FAERS Safety Report 24233659 (Version 1)
Quarter: 2024Q3

REPORT INFORMATION
  Report Type: Spontaneous
  Country: US (occurrence: US)
  Receive Date: 20240821
  Receipt Date: 20240821
  Transmission Date: 20241016
  Serious: No
  Sender: PERRIGO
  Company Number: US-PERRIGO-24US002362

PATIENT
  Age: 53 Year
  Sex: Female
  Weight: 56.689 kg

DRUGS (3)
  1. MINOXIDIL [Suspect]
     Active Substance: MINOXIDIL
     Indication: Alopecia
     Dosage: 0.25 ML, QD
     Route: 061
     Dates: start: 202309, end: 202312
  2. RITALIN [Concomitant]
     Active Substance: METHYLPHENIDATE HYDROCHLORIDE
     Indication: Attention deficit hyperactivity disorder
     Dosage: UNKNOWN, PRN
     Route: 065
     Dates: start: 1996
  3. VITAMINS NOS [Concomitant]
     Active Substance: VITAMINS
     Indication: Supplementation therapy
     Dosage: UNKNOWN, UNKNOWN
     Route: 065

REACTIONS (8)
  - Application site exfoliation [Recovering/Resolving]
  - Application site plaque [Recovered/Resolved]
  - Application site pain [Recovered/Resolved]
  - Dermatitis contact [Recovered/Resolved]
  - Application site erythema [Recovered/Resolved]
  - Off label use [Unknown]
  - Inappropriate schedule of product administration [Unknown]
  - Underdose [Unknown]

NARRATIVE: CASE EVENT DATE: 20230901
